FAERS Safety Report 8128518-9 (Version None)
Quarter: 2012Q1

REPORT INFORMATION
  Report Type: 
  Country: None (occurrence: None)
  Receive Date: 20120210
  Receipt Date: 20120130
  Transmission Date: 20120608
  Serious: Yes (Life-Threatening, Hospitalization)
  Sender: FDA-Public Use
  Company Number: US-JNJFOC-20100404265

PATIENT
  Sex: Male
  Weight: 47.8 kg

DRUGS (33)
  1. INFLIXIMAB [Suspect]
     Indication: CROHN'S DISEASE
     Dosage: PRIOR TO REGISTRY
     Route: 042
     Dates: start: 20051103
  2. BENADRYL [Concomitant]
  3. SCOPOLAMINE [Concomitant]
  4. VANCOMYCIN [Concomitant]
  5. ALUMINUM HYDROXIDE [Concomitant]
  6. ANTIBIOTICS [Concomitant]
     Indication: INFLAMMATORY BOWEL DISEASE
  7. METHOTREXATE [Suspect]
     Indication: CROHN'S DISEASE
  8. CALCIUM CARBONATE [Concomitant]
  9. FOLIC ACID [Concomitant]
  10. CYTARABINE [Concomitant]
  11. OXYCODONE HCL [Concomitant]
  12. RIFAXIMIN [Concomitant]
  13. MIRALAX [Concomitant]
  14. FLUCONAZOLE [Concomitant]
  15. NALBUPHINE [Concomitant]
  16. INFLIXIMAB [Suspect]
     Route: 042
     Dates: start: 20090429, end: 20090429
  17. HUMIRA [Suspect]
     Indication: CROHN'S DISEASE
     Dates: start: 20090512
  18. HUMIRA [Suspect]
     Dates: start: 20100331
  19. PREDNISONE TAB [Suspect]
     Indication: CROHN'S DISEASE
  20. IRON [Concomitant]
  21. IMODIUM [Concomitant]
  22. COTRIM [Concomitant]
  23. HUMIRA [Suspect]
     Dates: start: 20091116
  24. PEPTAMEN [Concomitant]
  25. CHOLECALCIFEROL [Concomitant]
  26. ZOSYN [Concomitant]
  27. CHLORHEXIDINE GLUCONATE [Concomitant]
  28. ATIVAN [Concomitant]
  29. OMEPRAZOLE [Concomitant]
  30. AUGMENTIN '125' [Concomitant]
  31. MORPHINE [Concomitant]
  32. ZANTAC [Concomitant]
  33. ONDANSETRON HCL [Concomitant]

REACTIONS (5)
  - TRANSFUSION REACTION [None]
  - SEPTIC SHOCK [None]
  - ACUTE MONOCYTIC LEUKAEMIA [None]
  - MYELOID LEUKAEMIA [None]
  - MULTI-ORGAN FAILURE [None]
